FAERS Safety Report 9518644 (Version 1)
Quarter: 2013Q1

REPORT INFORMATION
  Report Type: Spontaneous
  Country: US (occurrence: None)
  Receive Date: 20130305
  Receipt Date: 20130305
  Transmission Date: 20140127
  Serious: Yes (Hospitalization)
  Sender: FDA-Public Use
  Company Number: 163-21880-11121603

PATIENT
  Age: 67 Year
  Sex: Male
  Weight: 73.48 kg

DRUGS (13)
  1. REVLIMID (LENALIDOMIDE) (25 MILLIGRAM, CAPSULES) [Suspect]
     Indication: PLASMA CELL MYELOMA
     Dosage: 25 MG, 21 IN 28 D, PO
     Route: 048
     Dates: start: 20111117, end: 20111212
  2. ACTOSE (PIOGLITAZONE HYDROCHLORIDE) (CAPSULES) [Concomitant]
  3. ADVAIR DISKUS (SERETIDE MITE) (INHALANT) [Concomitant]
  4. CATAPRES (CLONIDINE) (POULTICE OR PATCH) [Concomitant]
  5. DEXAMETHASONE (DEXAMETHASONE) (TABLETS) [Concomitant]
  6. HYDROCHLORIOTHIAZIDE (HYDROCHLOROTHIAZIDE) (TABLETS) [Concomitant]
  7. POTASSIUM (POTASSUIM) (TABLETS) [Concomitant]
  8. AMLODIPINE (AMLODIPINE) (TABLETS) [Concomitant]
  9. FUROSEMIDE (FUROSEMIDE) (TABLETS) [Concomitant]
  10. HYDRALAZINE (HYDRALAZINE) (TABLETS) [Concomitant]
  11. METOPROLOL TARTRATE (METOROLOL TARTRATE) (TABLETS) [Concomitant]
  12. WARFARIN (WARFARIN) (TABLETS) [Concomitant]
  13. ARANESP (DARBEPOETIN ALFA) (TABLETS) [Concomitant]

REACTIONS (3)
  - Renal failure acute [None]
  - Azotaemia [None]
  - Blood creatinine abnormal [None]
